FAERS Safety Report 13088906 (Version 1)
Quarter: 2016Q4

REPORT INFORMATION
  Report Type: Spontaneous
  Country: US (occurrence: US)
  Receive Date: 20161231
  Receipt Date: 20161231
  Transmission Date: 20170207
  Serious: Yes (Hospitalization)
  Sender: FDA-Public Use
  Company Number: None

PATIENT
  Age: 41 Year
  Sex: Female
  Weight: 65.25 kg

DRUGS (1)
  1. KENALOG [Suspect]
     Active Substance: TRIAMCINOLONE ACETONIDE
     Indication: ARTHRITIS
     Dosage: QUANTITY:1 INJECTION(S);OTHER FREQUENCY:ONE TIME; SUBCUTANEOUS?
     Route: 058
     Dates: start: 20050520

REACTIONS (2)
  - Drug interaction [None]
  - Peripheral swelling [None]

NARRATIVE: CASE EVENT DATE: 20050520
